FAERS Safety Report 23393393 (Version 6)
Quarter: 2024Q1

REPORT INFORMATION
  Report Type: Report from Study
  Country: DE (occurrence: DE)
  Receive Date: 20240111
  Receipt Date: 20240219
  Transmission Date: 20240410
  Serious: Yes (Hospitalization, Other)
  Sender: FDA-Public Use
  Company Number: DE-PFM-2023-07068

PATIENT
  Age: 61 Year
  Sex: Female
  Weight: 60 kg

DRUGS (16)
  1. ENCORAFENIB [Suspect]
     Active Substance: ENCORAFENIB
     Indication: Malignant melanoma
     Dosage: 450 MG, QD (1/DAY)
     Route: 048
     Dates: start: 20220906, end: 20221024
  2. ENCORAFENIB [Suspect]
     Active Substance: ENCORAFENIB
     Dosage: 450 MG, QD (1/DAY)
     Route: 048
     Dates: start: 20221027, end: 20240103
  3. BINIMETINIB [Suspect]
     Active Substance: BINIMETINIB
     Indication: Malignant melanoma
     Dosage: 45 MG, BID (2/DAY)
     Route: 048
     Dates: start: 20220906, end: 20221024
  4. BINIMETINIB [Suspect]
     Active Substance: BINIMETINIB
     Dosage: 45 MG, BID (2/DAY)
     Route: 048
     Dates: start: 20221027, end: 20240103
  5. PANTOPRAZOLE SODIUM [Concomitant]
     Active Substance: PANTOPRAZOLE SODIUM
     Indication: Prophylaxis
     Dosage: UNK
     Route: 065
  6. CALCIUM SANDOZ [CALCIUM GLUBIONATE;CALCIUM LACTOBIONATE] [Concomitant]
     Indication: Prophylaxis
     Dosage: UNK
     Route: 065
  7. LEVOTHYROXINE [Concomitant]
     Active Substance: LEVOTHYROXINE\LEVOTHYROXINE SODIUM
     Dosage: UNK
     Route: 065
  8. PREDNISOLON [PREDNISOLONE SODIUM SUCCINATE] [Concomitant]
     Indication: Adrenocortical insufficiency acute
     Dosage: UNK
     Route: 065
     Dates: start: 20220921, end: 20220926
  9. PREDNISOLON [PREDNISOLONE SODIUM SUCCINATE] [Concomitant]
     Dosage: UNK
     Route: 065
     Dates: start: 20240105, end: 20240105
  10. HYDROCORTISONE SODIUM SUCCINATE [Concomitant]
     Active Substance: HYDROCORTISONE SODIUM SUCCINATE
     Indication: Adrenocortical insufficiency acute
     Dosage: UNK
     Route: 065
     Dates: start: 20221027, end: 20240108
  11. HYDROCORTISONE SODIUM SUCCINATE [Concomitant]
     Active Substance: HYDROCORTISONE SODIUM SUCCINATE
     Indication: Hypophysitis
     Dosage: UNK
     Dates: start: 20240108
  12. PARACETAMOL + ACECLOFENAC [Concomitant]
     Indication: Pyrexia
     Dosage: UNK
     Route: 065
     Dates: start: 20221027, end: 20221027
  13. SODIUM CHLORIDE [Concomitant]
     Active Substance: SODIUM CHLORIDE
     Indication: Cerebrospinal fluid leakage
     Dosage: UNK
     Route: 065
     Dates: start: 20230228
  14. GRANISETRON HYDROCHLORIDE [Concomitant]
     Active Substance: GRANISETRON HYDROCHLORIDE
     Indication: Cerebrospinal fluid leakage
     Dosage: UNK
     Route: 065
     Dates: start: 20230228
  15. METAMIZOLE [Concomitant]
     Active Substance: METAMIZOLE
     Indication: Cerebrospinal fluid leakage
     Dosage: UNK
     Route: 065
     Dates: start: 20230228
  16. OXYCODONE [Concomitant]
     Active Substance: OXYCODONE\OXYCODONE HYDROCHLORIDE
     Indication: Cerebrospinal fluid leakage
     Dosage: UNK
     Route: 065
     Dates: start: 20230228

REACTIONS (1)
  - Pain [Recovering/Resolving]

NARRATIVE: CASE EVENT DATE: 20231203
